FAERS Safety Report 8948241 (Version 1)
Quarter: 2012Q4

REPORT INFORMATION
  Report Type: Spontaneous
  Country: US (occurrence: None)
  Receive Date: 20121126
  Receipt Date: 20121126
  Transmission Date: 20130627
  Serious: Yes (Other)
  Sender: FDA-Public Use
  Company Number: B0846503A

PATIENT
  Age: 55 Year
  Sex: Male

DRUGS (2)
  1. ASPIRIN [Suspect]
     Indication: DRUG USE FOR UNKNOWN INDICATION
  2. ASPIRIN AND CAFFEINE [Suspect]
     Route: 048

REACTIONS (3)
  - Large intestinal stricture [None]
  - Haemoglobin decreased [None]
  - Urinary tract infection [None]
